FAERS Safety Report 5361721-X (Version None)
Quarter: 2007Q2

REPORT INFORMATION
  Report Type: 
  Country: None (occurrence: None)
  Receive Date: 20070615
  Receipt Date: 20070615
  Transmission Date: 20071010
  Serious: Yes (Hospitalization)
  Sender: FDA-Public Use
  Company Number: None

PATIENT
  Sex: Male
  Weight: 136.0791 kg

DRUGS (4)
  1. CISPLATIN [Suspect]
     Indication: NEOPLASM MALIGNANT
     Dosage: Q 3 WKS
     Dates: start: 20070516
  2. ERBITUX [Suspect]
     Indication: NEOPLASM MALIGNANT
     Dosage: WEEKLY
     Dates: start: 20070516
  3. TAXOTERE [Suspect]
     Indication: NEOPLASM MALIGNANT
     Dosage: Q 3WKS DOSE REDUCED
     Dates: start: 20070516
  4. SEE IMAGE [Concomitant]

REACTIONS (2)
  - FATIGUE [None]
  - FEBRILE NEUTROPENIA [None]
